FAERS Safety Report 7719181-7 (Version None)
Quarter: 2011Q3

REPORT INFORMATION
  Report Type: 
  Country: None (occurrence: None)
  Receive Date: 20110830
  Receipt Date: 20110824
  Transmission Date: 20111222
  Serious: Yes (Congenital Anomaly, Other)
  Sender: FDA-Public Use
  Company Number: GXKR2011DE02637

PATIENT
  Weight: 0.35 kg

DRUGS (3)
  1. FOLSAEURE ^HEVERT^ [Concomitant]
     Route: 064
  2. CITALOPRAM [Suspect]
     Dosage: MATERNAL DOSE 20 MG DAILY SINCE GW6
     Route: 064
  3. CITALOPRAM [Suspect]
     Dosage: MATERNAL DOSE: 30 MG/DAY GW 0-5
     Route: 064

REACTIONS (5)
  - SPINA BIFIDA [None]
  - HYDROCEPHALUS [None]
  - MATERNAL DRUGS AFFECTING FOETUS [None]
  - MATERNAL EXPOSURE DURING PREGNANCY [None]
  - ABORTION INDUCED [None]
